APPROVED DRUG PRODUCT: ATENOLOL AND CHLORTHALIDONE
Active Ingredient: ATENOLOL; CHLORTHALIDONE
Strength: 50MG;25MG
Dosage Form/Route: TABLET;ORAL
Application: A072302 | Product #002 | TE Code: AB
Applicant: AIPING PHARMACEUTICAL INC
Approved: May 31, 1990 | RLD: No | RS: No | Type: RX